FAERS Safety Report 5220780-5 (Version None)
Quarter: 2007Q1

REPORT INFORMATION
  Report Type: 
  Country: None (occurrence: None)
  Receive Date: 20070126
  Receipt Date: 20070118
  Transmission Date: 20070707
  Serious: Yes (Death, Life-Threatening, Other)
  Sender: FDA-Public Use
  Company Number: GB-JNJFOC-20070105060

PATIENT
  Sex: Female
  Weight: 52 kg

DRUGS (6)
  1. REMICADE [Suspect]
     Indication: RHEUMATOID ARTHRITIS
     Route: 042
  2. METHOTREXATE [Concomitant]
  3. PRENISOLONE [Concomitant]
  4. DIDRONEL [Concomitant]
  5. HRT [Concomitant]
  6. NABUMETOME [Concomitant]

REACTIONS (1)
  - CEREBROVASCULAR DISORDER [None]
